FAERS Safety Report 5918789-9 (Version None)
Quarter: 2008Q4

REPORT INFORMATION
  Report Type: 
  Country: None (occurrence: None)
  Receive Date: 20081015
  Receipt Date: 20080930
  Transmission Date: 20090506
  Serious: Yes (Hospitalization)
  Sender: FDA-Public Use
  Company Number: US-AMGEN-US249055

PATIENT
  Sex: Female
  Weight: 73.1 kg

DRUGS (3)
  1. ENBREL [Suspect]
     Indication: RHEUMATOID ARTHRITIS
     Route: 058
     Dates: start: 20040515
  2. PREDNISONE [Concomitant]
     Dates: start: 20031006
  3. VITAMIN TAB [Concomitant]
     Dates: start: 20030301

REACTIONS (2)
  - PLACENTA PRAEVIA HAEMORRHAGE [None]
  - PREMATURE SEPARATION OF PLACENTA [None]
